FAERS Safety Report 25152985 (Version 2)
Quarter: 2025Q2

REPORT INFORMATION
  Report Type: Spontaneous
  Country: BR (occurrence: BR)
  Receive Date: 20250403
  Receipt Date: 20250602
  Transmission Date: 20250717
  Serious: Yes (Hospitalization, Other)
  Sender: NOVO NORDISK
  Company Number: BR-NOVOPROD-1398012

PATIENT
  Age: 839 Month
  Sex: Female

DRUGS (1)
  1. XULTOPHY 100/3.6 [Suspect]
     Active Substance: INSULIN DEGLUDEC\LIRAGLUTIDE
     Indication: Product used for unknown indication
     Dosage: 8 IU, QD (IN THE MORNING)

REACTIONS (3)
  - Hypoglycaemia [Unknown]
  - Device mechanical issue [Unknown]
  - Incorrect dose administered by device [Unknown]
